FAERS Safety Report 12570585 (Version 2)
Quarter: 2016Q3

REPORT INFORMATION
  Report Type: Report from Study
  Country: US (occurrence: US)
  Receive Date: 20160719
  Receipt Date: 20160728
  Transmission Date: 20161109
  Serious: Yes (Other)
  Sender: FDA-Public Use
  Company Number: US-ABBVIE-16K-163-1674540-00

PATIENT
  Sex: Female
  Weight: 91.25 kg

DRUGS (16)
  1. MAGNESIUM [Concomitant]
     Active Substance: MAGNESIUM
     Indication: MUSCLE SPASMS
  2. HUMIRA [Suspect]
     Active Substance: ADALIMUMAB
     Indication: RHEUMATOID ARTHRITIS
     Route: 058
     Dates: start: 201512, end: 20160719
  3. FLONASE [Concomitant]
     Active Substance: FLUTICASONE PROPIONATE
     Indication: SEASONAL ALLERGY
  4. ADVAIR HFA [Concomitant]
     Active Substance: FLUTICASONE PROPIONATE\SALMETEROL XINAFOATE
     Indication: ALLERGIC BRONCHITIS
  5. ESTRADIOL. [Concomitant]
     Active Substance: ESTRADIOL
     Indication: HORMONE REPLACEMENT THERAPY
  6. VITAMIN E [Concomitant]
     Active Substance: .ALPHA.-TOCOPHEROL
     Indication: PRODUCT USED FOR UNKNOWN INDICATION
  7. LEVOTHYROXINE. [Suspect]
     Active Substance: LEVOTHYROXINE
     Indication: HYPOTHYROIDISM
     Route: 048
     Dates: start: 2013
  8. PROBIOTIC [Concomitant]
     Active Substance: PROBIOTICS NOS
     Indication: GASTROINTESTINAL DISORDER
  9. PROAIR HFA [Concomitant]
     Active Substance: ALBUTEROL SULFATE
     Indication: ASTHMA
  10. BIOTIN [Concomitant]
     Active Substance: BIOTIN
     Indication: HAIR DISORDER
  11. HYDROCHLOROTHIAZIDE W/TRIAMTERENE [Concomitant]
     Active Substance: HYDROCHLOROTHIAZIDE\TRIAMTERENE
     Indication: FLUID RETENTION
  12. FOLIC ACID. [Concomitant]
     Active Substance: FOLIC ACID
     Indication: PRODUCT USED FOR UNKNOWN INDICATION
  13. ZANTAC [Concomitant]
     Active Substance: RANITIDINE HYDROCHLORIDE
     Indication: DYSPEPSIA
  14. LEFLUNOMIDE. [Suspect]
     Active Substance: LEFLUNOMIDE
     Indication: RHEUMATOID ARTHRITIS
     Route: 048
     Dates: start: 2015
  15. FEXOFENADINE [Concomitant]
     Active Substance: FEXOFENADINE\FEXOFENADINE HYDROCHLORIDE
     Indication: SEASONAL ALLERGY
  16. SYSTANE (HYPROMELLOSE 2910 (4000 MPA.S)) [Concomitant]
     Active Substance: HYPROMELLOSE 2910 (4000 MPA.S)
     Indication: DRY EYE

REACTIONS (9)
  - Macular degeneration [Not Recovered/Not Resolved]
  - Injection site pain [Recovered/Resolved]
  - Drug ineffective [Not Recovered/Not Resolved]
  - Visual field defect [Not Recovered/Not Resolved]
  - Cataract [Not Recovered/Not Resolved]
  - Joint swelling [Not Recovered/Not Resolved]
  - Pain [Not Recovered/Not Resolved]
  - Trigger finger [Not Recovered/Not Resolved]
  - Alopecia [Not Recovered/Not Resolved]

NARRATIVE: CASE EVENT DATE: 2016
